FAERS Safety Report 24890398 (Version 1)
Quarter: 2025Q1

REPORT INFORMATION
  Report Type: Spontaneous
  Country: US (occurrence: US)
  Receive Date: 20250127
  Receipt Date: 20250127
  Transmission Date: 20250409
  Serious: Yes (Other)
  Sender: ALEXION PHARMACEUTICALS
  Company Number: US-AstraZeneca-CH-00792943A

PATIENT

DRUGS (2)
  1. TAGRISSO [Suspect]
     Active Substance: OSIMERTINIB
     Indication: Non-small cell lung cancer
     Route: 065
  2. TAGRISSO [Suspect]
     Active Substance: OSIMERTINIB
     Indication: Metastases to central nervous system

REACTIONS (10)
  - Peritumoural oedema [Unknown]
  - Cardiac disorder [Unknown]
  - Cardiac disorder [Unknown]
  - Heart rate irregular [Unknown]
  - Cardiac disorder [Unknown]
  - Drug level decreased [Unknown]
  - Ventricular extrasystoles [Unknown]
  - Supraventricular tachycardia [Unknown]
  - Drug effect less than expected [Unknown]
  - Off label use [Unknown]
